FAERS Safety Report 25736510 (Version 1)
Quarter: 2025Q3

REPORT INFORMATION
  Report Type: Spontaneous
  Country: US (occurrence: US)
  Receive Date: 20250828
  Receipt Date: 20250828
  Transmission Date: 20251020
  Serious: Yes (Disabling)
  Sender: SANOFI AVENTIS
  Company Number: US-SA-2025SA257224

PATIENT
  Age: 64 Year
  Sex: Female

DRUGS (1)
  1. LANTUS SOLOSTAR [Suspect]
     Active Substance: INSULIN GLARGINE
     Indication: Blood glucose increased
     Route: 058

REACTIONS (1)
  - Diabetic foot [Recovering/Resolving]

NARRATIVE: CASE EVENT DATE: 20250711
